FAERS Safety Report 4301899-X (Version None)
Quarter: 2004Q1

REPORT INFORMATION
  Report Type: 
  Country: None (occurrence: None)
  Receive Date: 20040219
  Receipt Date: 20040210
  Transmission Date: 20041129
  Serious: Yes (Life-Threatening, Other)
  Sender: FDA-Public Use
  Company Number: NSADSS2002012472

PATIENT
  Age: 64 Year
  Sex: Female

DRUGS (5)
  1. REOPRO [Suspect]
     Indication: CORONARY ANGIOPLASTY
     Dosage: , 1 IN 1 AS NECESSARY, INTRAVENOUS DRIP
     Route: 041
     Dates: start: 20020409, end: 20020409
  2. HEPARIN SODIUM [Suspect]
     Dosage: , 1 IN 1 AS NECESSARY, INTRAVENOUS DRIP
     Route: 041
     Dates: start: 20020409, end: 20020409
  3. ASPIRIN [Concomitant]
  4. NITRATES (ORGANIC NITRATES) [Concomitant]
  5. CONTRAST DYE (CONTRAST MEDIA) [Concomitant]

REACTIONS (5)
  - ANAPHYLACTIC REACTION [None]
  - DYSPNOEA [None]
  - HYPOTENSION [None]
  - HYPOXIA [None]
  - RASH ERYTHEMATOUS [None]
